FAERS Safety Report 24644655 (Version 1)
Quarter: 2024Q4

REPORT INFORMATION
  Report Type: Spontaneous
  Country: GR (occurrence: GR)
  Receive Date: 20241121
  Receipt Date: 20241121
  Transmission Date: 20250114
  Serious: Yes (Other)
  Sender: AMGEN
  Company Number: GR-AMGEN-GRCSP2024225589

PATIENT

DRUGS (3)
  1. XGEVA [Suspect]
     Active Substance: DENOSUMAB
     Indication: Lung neoplasm malignant
     Dosage: UNK
     Route: 065
  2. XGEVA [Suspect]
     Active Substance: DENOSUMAB
     Indication: Malignant melanoma
  3. BEVACIZUMAB [Suspect]
     Active Substance: BEVACIZUMAB
     Indication: Lung neoplasm malignant
     Dosage: UNK
     Route: 065

REACTIONS (9)
  - Mucous membrane pemphigoid [Unknown]
  - Osteonecrosis of jaw [Unknown]
  - Herpes virus infection [Unknown]
  - Oral lichenoid reaction [Unknown]
  - Candida infection [Unknown]
  - Dry mouth [Unknown]
  - Oral disorder [Unknown]
  - Mouth ulceration [Unknown]
  - Lichen planus [Unknown]
